FAERS Safety Report 13641540 (Version 5)
Quarter: 2020Q3

REPORT INFORMATION
  Report Type: Report from Study
  Country: FR (occurrence: FR)
  Receive Date: 20170612
  Receipt Date: 20180807
  Transmission Date: 20201104
  Serious: Yes (Hospitalization)
  Sender: FDA-Public Use
  Company Number: FR-JNJFOC-20170603861

PATIENT
  Age: 61 Year
  Sex: Male
  Weight: 60 kg

DRUGS (5)
  1. DARATUMUMAB [Suspect]
     Active Substance: DARATUMUMAB
     Indication: PLASMA CELL MYELOMA
     Route: 042
     Dates: start: 20170404, end: 20170523
  2. BORTEZOMIB. [Suspect]
     Active Substance: BORTEZOMIB
     Indication: PLASMA CELL MYELOMA
     Route: 058
     Dates: start: 20170404, end: 20170512
  3. THALIDOMIDE [Suspect]
     Active Substance: THALIDOMIDE
     Indication: PLASMA CELL MYELOMA
     Route: 065
     Dates: start: 20170404, end: 20170529
  4. DARATUMUMAB [Suspect]
     Active Substance: DARATUMUMAB
     Route: 042
  5. DEXAMETHASONE. [Suspect]
     Active Substance: DEXAMETHASONE
     Indication: PLASMA CELL MYELOMA
     Route: 065
     Dates: start: 20170404, end: 20170524

REACTIONS (1)
  - Herpes zoster meningoencephalitis [Recovered/Resolved]

NARRATIVE: CASE EVENT DATE: 20170530
